FAERS Safety Report 19497941 (Version 3)
Quarter: 2021Q3

REPORT INFORMATION
  Report Type: Report from Study
  Country: BR (occurrence: BR)
  Receive Date: 20210706
  Receipt Date: 20210825
  Transmission Date: 20211014
  Serious: Yes (Other)
  Sender: FDA-Public Use
  Company Number: NVSC2021BR067576

PATIENT
  Sex: Female
  Weight: 64 kg

DRUGS (3)
  1. LETROZOLE. [Suspect]
     Active Substance: LETROZOLE
     Indication: HORMONE THERAPY
     Dosage: 2.5 MG, QD
     Route: 048
     Dates: start: 202002
  2. KISQALI [Suspect]
     Active Substance: RIBOCICLIB
     Indication: BREAST CANCER METASTATIC
     Dosage: 3 DF, QD
     Route: 065
     Dates: start: 202002, end: 202105
  3. KISQALI [Suspect]
     Active Substance: RIBOCICLIB
     Dosage: 2 DF, QD (400 MG)
     Route: 048
     Dates: start: 20210626, end: 20210713

REACTIONS (18)
  - Wound [Recovered/Resolved with Sequelae]
  - Hypersensitivity [Recovered/Resolved]
  - Contusion [Not Recovered/Not Resolved]
  - Gastrointestinal infection [Recovered/Resolved]
  - Immunodeficiency [Recovering/Resolving]
  - Mucosal inflammation [Recovered/Resolved]
  - Malaise [Recovering/Resolving]
  - Dry skin [Recovered/Resolved]
  - Nausea [Recovering/Resolving]
  - Metastases to bone [Unknown]
  - Pain [Recovering/Resolving]
  - Diarrhoea [Recovered/Resolved]
  - Neutrophil count decreased [Not Recovered/Not Resolved]
  - Blister [Not Recovered/Not Resolved]
  - Hypersensitivity [Recovered/Resolved]
  - Wound [Recovered/Resolved]
  - Inappropriate schedule of product administration [Unknown]
  - Pruritus [Recovered/Resolved]

NARRATIVE: CASE EVENT DATE: 2020
